FAERS Safety Report 4713550-5 (Version None)
Quarter: 2005Q3

REPORT INFORMATION
  Report Type: 
  Country: None (occurrence: None)
  Receive Date: 20050711
  Receipt Date: 20050623
  Transmission Date: 20060218
  Serious: Yes (Hospitalization, Disabling, Other)
  Sender: FDA-Public Use
  Company Number: 2005EU001395

PATIENT
  Age: 19 Year
  Sex: Female

DRUGS (14)
  1. FK506 (TACROLIMUS) CAPSULE [Suspect]
     Indication: STEM CELL TRANSPLANT
  2. POSACONAZOLE [Suspect]
     Indication: FUNGAL INFECTION
     Dosage: SEE IMAGE
     Route: 048
     Dates: start: 20050308, end: 20050318
  3. POSACONAZOLE [Suspect]
     Indication: FUNGAL INFECTION
     Dosage: SEE IMAGE
     Route: 048
     Dates: start: 20050531
  4. BACTRIM [Concomitant]
  5. ORGAMETRIL (LYNESTRENOL) [Concomitant]
  6. ADALAT [Concomitant]
  7. LAMICTAL [Concomitant]
  8. ZOVIRAX [Concomitant]
  9. ATROVENT [Concomitant]
  10. VENTOLIN [Concomitant]
  11. NEUPOGEN [Concomitant]
  12. PULMICORT [Concomitant]
  13. AMPHOTERICIN B [Concomitant]
  14. KALIUM DURETTES (POTASSIUM CHLORIDE) [Concomitant]

REACTIONS (11)
  - CONFUSIONAL STATE [None]
  - DISEASE PROGRESSION [None]
  - EPILEPSY [None]
  - HEMIANOPIA [None]
  - HEMIANOPIA HOMONYMOUS [None]
  - LUNG DISORDER [None]
  - MYDRIASIS [None]
  - OBSTRUCTIVE AIRWAYS DISORDER [None]
  - PANIC ATTACK [None]
  - PNEUMONIA [None]
  - VISUAL DISTURBANCE [None]
